FAERS Safety Report 8010627-6 (Version None)
Quarter: 2011Q4

REPORT INFORMATION
  Report Type: 
  Country: None (occurrence: None)
  Receive Date: 20111228
  Receipt Date: 20111219
  Transmission Date: 20120403
  Serious: Yes (Other)
  Sender: FDA-Public Use
  Company Number: JP-PFIZER INC-2011051279

PATIENT
  Age: 77 Year
  Sex: Female

DRUGS (8)
  1. CEFAZOLIN [Suspect]
     Dosage: 4 G, A DAY
  2. VANCOMYCIN HCL [Suspect]
     Dosage: 500 MG/DAY FOR 14 DAYS
     Route: 048
  3. VANCOMYCIN HCL [Suspect]
     Dosage: 500 MG/DAY FOR 21 DAYS
     Route: 048
  4. VANCOMYCIN HCL [Suspect]
     Dosage: 500 MG/DAY FOR 28 DAYS
     Route: 048
  5. VANCOMYCIN HCL [Suspect]
     Dosage: 125 MG/DAY
     Route: 048
  6. METRONIDAZOLE [Suspect]
     Dosage: 1500 MG/DAY
     Route: 048
  7. CLINDAMYCIN PHOSPHATE [Suspect]
     Dosage: 2400 MG/DAY
  8. VANCOMYCIN HCL [Suspect]
     Dosage: 500 MG/DAY FOR A MONTH
     Route: 048

REACTIONS (2)
  - DISEASE RECURRENCE [None]
  - PSEUDOMEMBRANOUS COLITIS [None]
